FAERS Safety Report 4423594-9 (Version None)
Quarter: 2004Q3

REPORT INFORMATION
  Report Type: 
  Country: None (occurrence: None)
  Receive Date: 20040805
  Receipt Date: 20040723
  Transmission Date: 20050211
  Serious: Yes (Hospitalization)
  Sender: FDA-Public Use
  Company Number: 2004051890

PATIENT
  Sex: Female

DRUGS (13)
  1. AMLODIPINE BESYLATE [Suspect]
     Indication: ILL-DEFINED DISORDER
     Dates: end: 20040701
  2. NORVASC [Suspect]
     Indication: ILL-DEFINED DISORDER
     Dosage: 2.5 MG (2.5 MG, 1 IN 1 D), ORAL
     Route: 048
     Dates: start: 20040701
  3. ZOPICLONE [Concomitant]
  4. TOCOPHERYL NICOTINATE [Concomitant]
  5. KALLIDINOGENASE [Concomitant]
  6. AMBROXOL HYDROCHLORIDE [Concomitant]
  7. EPRAZINONE HYDROCHLORIDE [Concomitant]
  8. TRICHLORMETHIAZIDE [Concomitant]
  9. ALFACALCIDOL [Concomitant]
  10. ANTIBIOTICS [Concomitant]
  11. AMLODIPINE BESYLATE [Concomitant]
  12. TRICHLORMETHIAZIDE [Concomitant]
  13. ALFACALCIDOL [Concomitant]

REACTIONS (1)
  - PAROSMIA [None]
